FAERS Safety Report 10441348 (Version 1)
Quarter: 2014Q3

REPORT INFORMATION
  Report Type: Report from Study
  Country: FR (occurrence: FR)
  Receive Date: 20140909
  Receipt Date: 20140909
  Transmission Date: 20150326
  Serious: Yes (Hospitalization, Other)
  Sender: FDA-Public Use
  Company Number: FR-ACTELION-A-CH2014-104466

PATIENT
  Age: 8 Year
  Sex: Male
  Weight: 34.2 kg

DRUGS (5)
  1. ZAVESCA [Suspect]
     Active Substance: MIGLUSTAT
     Indication: NIEMANN-PICK DISEASE
     Dosage: 200 MG, BID
     Route: 048
     Dates: start: 20100218, end: 201002
  2. ANAFRANIL [Concomitant]
     Active Substance: CLOMIPRAMINE HYDROCHLORIDE
     Indication: CATAPLEXY
     Dosage: UNK
     Dates: start: 2011
  3. ZAVESCA [Suspect]
     Active Substance: MIGLUSTAT
     Dosage: 100 MG, BID
     Route: 048
     Dates: start: 201002, end: 201406
  4. DEPAKINE [Concomitant]
     Active Substance: VALPROATE SODIUM
     Indication: CONVULSION
     Dosage: UNK
     Dates: start: 201308
  5. KEPPRA [Concomitant]
     Active Substance: LEVETIRACETAM
     Indication: CONVULSION
     Dosage: UNK
     Dates: start: 201309

REACTIONS (7)
  - Niemann-Pick disease [Not Recovered/Not Resolved]
  - Disease progression [Not Recovered/Not Resolved]
  - Crohn^s disease [Not Recovered/Not Resolved]
  - Diarrhoea [Not Recovered/Not Resolved]
  - Gastrointestinal disorder [Not Recovered/Not Resolved]
  - Convulsion [Not Recovered/Not Resolved]
  - General physical health deterioration [Not Recovered/Not Resolved]

NARRATIVE: CASE EVENT DATE: 2010
